FAERS Safety Report 11110095 (Version 4)
Quarter: 2016Q3

REPORT INFORMATION
  Report Type: Spontaneous
  Country: US (occurrence: US)
  Receive Date: 20150513
  Receipt Date: 20160801
  Transmission Date: 20161109
  Serious: No
  Sender: FDA-Public Use
  Company Number: US-PFIZER INC-2015160763

PATIENT
  Age: 60 Year
  Sex: Male

DRUGS (14)
  1. ACETYLSALICYLIC ACID [Suspect]
     Active Substance: ASPIRIN
     Dosage: UNK
  2. LIDODERM [Suspect]
     Active Substance: LIDOCAINE
     Dosage: UNK
  3. FOSAMAX [Suspect]
     Active Substance: ALENDRONATE SODIUM
     Dosage: UNK
  4. CODEINE [Suspect]
     Active Substance: CODEINE
     Dosage: UNK
  5. MOTRIN [Suspect]
     Active Substance: IBUPROFEN
     Dosage: UNK
  6. ULTRAM [Suspect]
     Active Substance: TRAMADOL HYDROCHLORIDE
     Dosage: UNK
  7. LEVAQUIN [Suspect]
     Active Substance: LEVOFLOXACIN
     Dosage: UNK
  8. VITAMIN C [Suspect]
     Active Substance: ASCORBIC ACID
     Dosage: UNK
  9. NEURONTIN [Suspect]
     Active Substance: GABAPENTIN
     Dosage: UNK
  10. VIC [Suspect]
     Active Substance: MINERALS\VITAMINS
     Dosage: UNK
  11. ULTRA [Suspect]
     Active Substance: SULFACETAMIDE SODIUM
     Dosage: UNK
  12. CELEBREX [Suspect]
     Active Substance: CELECOXIB
     Dosage: UNK
  13. MORPHINE SULFATE. [Suspect]
     Active Substance: MORPHINE SULFATE
     Dosage: UNK
  14. VICODIN [Suspect]
     Active Substance: ACETAMINOPHEN\HYDROCODONE BITARTRATE
     Dosage: UNK

REACTIONS (1)
  - Drug hypersensitivity [Unknown]
